FAERS Safety Report 24097027 (Version 1)
Quarter: 2024Q3

REPORT INFORMATION
  Report Type: Spontaneous
  Country: US (occurrence: US)
  Receive Date: 20240716
  Receipt Date: 20240716
  Transmission Date: 20241017
  Serious: No
  Sender: GRIFOLS
  Company Number: US-IGSA-BIG0027131

PATIENT
  Sex: Female

DRUGS (1)
  1. GAMUNEX-C [Suspect]
     Active Substance: HUMAN IMMUNOGLOBULIN G
     Indication: Chronic inflammatory demyelinating polyradiculoneuropathy
     Dosage: 41 GRAM, QD
     Route: 042
     Dates: start: 20231110

REACTIONS (6)
  - Blister [Unknown]
  - Weight increased [Unknown]
  - Nail disorder [Unknown]
  - Alopecia [Unknown]
  - Skin atrophy [Recovered/Resolved]
  - Injection site bruising [Recovered/Resolved]
